FAERS Safety Report 7451131-3 (Version None)
Quarter: 2011Q2

REPORT INFORMATION
  Report Type: 
  Country: None (occurrence: None)
  Receive Date: 20110502
  Receipt Date: 20110419
  Transmission Date: 20111010
  Serious: Yes (Other)
  Sender: FDA-Public Use
  Company Number: PHHY2010US70715

PATIENT
  Sex: Female

DRUGS (8)
  1. DIOVAN [Suspect]
     Dosage: 320 MG, QD
     Dates: start: 20100831, end: 20101020
  2. ASPIRIN [Concomitant]
     Dosage: QD
     Dates: start: 20061205
  3. DIOVAN [Suspect]
     Indication: HYPERTENSION
     Dosage: 80 MG, QD
  4. DIOVAN [Suspect]
     Dosage: 160 MG
     Dates: start: 20100601
  5. MIACALCIN [Concomitant]
     Indication: OSTEOPENIA
     Dosage: QD
     Route: 045
     Dates: start: 20061205
  6. CALCIUM + MAGNESIUM + ZINC [Concomitant]
  7. CALMS FORTE [Concomitant]
  8. XANAX [Concomitant]
     Dosage: 0.25 (UNKNOWN UNITS)

REACTIONS (8)
  - TONGUE DRY [None]
  - MUSCULAR WEAKNESS [None]
  - FEELING HOT [None]
  - POLLAKIURIA [None]
  - DYSURIA [None]
  - INSOMNIA [None]
  - NIGHTMARE [None]
  - CHROMATURIA [None]
